FAERS Safety Report 6255350-3 (Version None)
Quarter: 2009Q3

REPORT INFORMATION
  Report Type: 
  Country: None (occurrence: None)
  Receive Date: 20090702
  Receipt Date: 20090625
  Transmission Date: 20100115
  Serious: Yes (Other)
  Sender: FDA-Public Use
  Company Number: US-ABBOTT-09P-163-0581989-00

PATIENT
  Sex: Female
  Weight: 93.1 kg

DRUGS (10)
  1. HUMIRA [Suspect]
     Indication: CROHN'S DISEASE
     Route: 050
     Dates: start: 20080702, end: 20090401
  2. COFFEE [Concomitant]
     Indication: DRUG USE FOR UNKNOWN INDICATION
     Route: 048
     Dates: start: 20080702, end: 20090401
  3. TYLENOL ALLERGY SINUS [Concomitant]
     Indication: HYPERSENSITIVITY
     Route: 048
     Dates: start: 20080702, end: 20080803
  4. TYLENOL ALLERGY SINUS [Concomitant]
     Dosage: FORM: PILL
     Dates: start: 20080805, end: 20090401
  5. VITAMIN TAB [Concomitant]
     Indication: DRUG USE FOR UNKNOWN INDICATION
     Route: 048
     Dates: start: 20080702, end: 20090401
  6. FOLIC ACID [Concomitant]
     Indication: DRUG USE FOR UNKNOWN INDICATION
     Dosage: FORM: PILL
     Route: 048
     Dates: start: 20080702, end: 20080812
  7. AMOXICILLIN [Concomitant]
     Indication: LOWER RESPIRATORY TRACT INFECTION
     Dates: start: 20081014, end: 20081023
  8. AMOXICILLIN [Concomitant]
     Route: 048
     Dates: start: 20081201, end: 20081210
  9. LACTOBACILLUS ACIDOPHILUS [Concomitant]
     Indication: PROPHYLAXIS
     Dosage: FORM: PILLS
     Dates: start: 20081014, end: 20081024
  10. LACTOBACILLUS ACIDOPHILUS [Concomitant]
     Indication: FUNGAL INFECTION
     Dosage: FORM: PILL
     Dates: start: 20081201, end: 20081211

REACTIONS (1)
  - BENIGN OVARIAN TUMOUR [None]
